FAERS Safety Report 8846168 (Version 3)
Quarter: 2012Q4

REPORT INFORMATION
  Report Type: 
  Country: JP (occurrence: JP)
  Receive Date: 20121017
  Receipt Date: 20121113
  Transmission Date: 20130627
  Serious: Yes (Hospitalization)
  Sender: FDA-Public Use
  Company Number: JP-ELI_LILLY_AND_COMPANY-JP201210001599

PATIENT
  Age: 49 Year
  Sex: Male
  Weight: 63 kg

DRUGS (3)
  1. ZYPREXA [Suspect]
     Indication: SCHIZOPHRENIA
     Dosage: 10 mg, qd
     Route: 048
     Dates: end: 20120621
  2. GASTER [Concomitant]
     Indication: GASTROOESOPHAGEAL REFLUX DISEASE
     Dosage: UNK DF, UNK
     Route: 048
     Dates: end: 20120609
  3. PROHEPARUM [Concomitant]
     Indication: ALCOHOLIC LIVER DISEASE
     Dosage: UNK
     Route: 048
     Dates: end: 20120609

REACTIONS (1)
  - Intracranial venous sinus thrombosis [Recovered/Resolved]
